FAERS Safety Report 17386428 (Version 1)
Quarter: 2020Q1

REPORT INFORMATION
  Report Type: Spontaneous
  Country: ES (occurrence: ES)
  Receive Date: 20200206
  Receipt Date: 20200206
  Transmission Date: 20200409
  Serious: Yes (Other)
  Sender: FDA-Public Use
  Company Number: ES-PFIZER INC-2020049289

PATIENT
  Age: 26 Year
  Sex: Female
  Weight: 62 kg

DRUGS (1)
  1. LOETTE [Suspect]
     Active Substance: ETHINYL ESTRADIOL\LEVONORGESTREL
     Dosage: UNK
     Route: 048
     Dates: start: 2018, end: 20191215

REACTIONS (3)
  - Jaundice [Not Recovered/Not Resolved]
  - Blood cholesterol increased [Not Recovered/Not Resolved]
  - Blood bilirubin abnormal [Not Recovered/Not Resolved]

NARRATIVE: CASE EVENT DATE: 20180716
